FAERS Safety Report 19354102 (Version 2)
Quarter: 2022Q4

REPORT INFORMATION
  Report Type: Spontaneous
  Country: US (occurrence: US)
  Receive Date: 20210602
  Receipt Date: 20221014
  Transmission Date: 20230112
  Serious: No
  Sender: FDA-Public Use
  Company Number: US-JNJFOC-20170321561

PATIENT
  Age: 10 Year
  Sex: Male

DRUGS (6)
  1. RISPERDAL [Suspect]
     Active Substance: RISPERIDONE
     Indication: Product used for unknown indication
     Route: 048
     Dates: start: 20080301, end: 2009
  2. RISPERDAL [Suspect]
     Active Substance: RISPERIDONE
     Indication: Autism spectrum disorder
     Route: 048
  3. RISPERDAL [Suspect]
     Active Substance: RISPERIDONE
  4. RISPERDAL [Suspect]
     Active Substance: RISPERIDONE
     Indication: Product used for unknown indication
     Route: 048
  5. RISPERDAL [Suspect]
     Active Substance: RISPERIDONE
  6. RISPERIDONE [Suspect]
     Active Substance: RISPERIDONE
     Indication: Product used for unknown indication
     Route: 048

REACTIONS (3)
  - Emotional disorder [Unknown]
  - Gynaecomastia [Unknown]
  - Abnormal weight gain [Unknown]

NARRATIVE: CASE EVENT DATE: 20091101
